FAERS Safety Report 4800397-4 (Version None)
Quarter: 2005Q4

REPORT INFORMATION
  Report Type: 
  Country: None (occurrence: None)
  Receive Date: 20051013
  Receipt Date: 20051005
  Transmission Date: 20060501
  Serious: No
  Sender: FDA-Public Use
  Company Number: 2005US001124

PATIENT
  Age: 43 Year
  Sex: Male

DRUGS (4)
  1. PROTOPIC [Suspect]
     Indication: SKIN DISORDER
     Dosage: UID/QD, TOPICAL
     Route: 061
     Dates: start: 20040301
  2. FLOVENT [Concomitant]
  3. VENTOLIN [Concomitant]
  4. HYDROCHLOROTHIAZIDE [Concomitant]

REACTIONS (2)
  - BLISTER [None]
  - CUTANEOUS SARCOIDOSIS [None]
